FAERS Safety Report 6980388-8 (Version None)
Quarter: 2010Q3

REPORT INFORMATION
  Report Type: 
  Country: None (occurrence: None)
  Receive Date: 20100914
  Receipt Date: 20100826
  Transmission Date: 20110219
  Serious: Yes (Other)
  Sender: FDA-Public Use
  Company Number: US-SANOFI-AVENTIS-2010SA052286

PATIENT
  Age: 47 Year
  Sex: Female

DRUGS (11)
  1. PLAVIX [Suspect]
     Route: 048
     Dates: start: 20090501, end: 20091001
  2. PLAVIX [Suspect]
     Indication: STENT PLACEMENT
     Route: 048
     Dates: start: 20090501, end: 20091001
  3. PLAVIX [Suspect]
     Route: 048
     Dates: start: 20100829
  4. PLAVIX [Suspect]
     Route: 048
     Dates: start: 20100829
  5. CLOPIDOGREL [Suspect]
     Route: 048
     Dates: start: 20091001, end: 20100801
  6. CLOPIDOGREL [Suspect]
     Indication: STENT PLACEMENT
     Route: 048
     Dates: start: 20091001, end: 20100801
  7. PRAVACHOL [Concomitant]
  8. ZESTRIL [Concomitant]
  9. CELEXA [Concomitant]
  10. NEURONTIN [Concomitant]
  11. ASPIRIN [Concomitant]

REACTIONS (2)
  - CAROTID ARTERY OCCLUSION [None]
  - OFF LABEL USE [None]
